FAERS Safety Report 4420323-X (Version None)
Quarter: 2004Q3

REPORT INFORMATION
  Report Type: 
  Country: None (occurrence: None)
  Receive Date: 20040804
  Receipt Date: 20040727
  Transmission Date: 20050211
  Serious: Yes (Hospitalization)
  Sender: FDA-Public Use
  Company Number: USA-2002-003342

PATIENT
  Age: 35 Year
  Sex: Female

DRUGS (6)
  1. BETASERON [Suspect]
     Indication: MULTIPLE SCLEROSIS
     Dosage: 8 MIU,, EVERY 2 D, SUBCUTANEOUS
     Route: 058
     Dates: start: 20020404
  2. ZANAFLEX [Concomitant]
  3. PROZAC [Concomitant]
  4. XANAX [Concomitant]
  5. SYNTHROID [Concomitant]
  6. NEXIUM [Concomitant]

REACTIONS (4)
  - MUSCLE CRAMP [None]
  - MUSCLE SPASMS [None]
  - OEDEMA PERIPHERAL [None]
  - STASIS SYNDROME [None]
